FAERS Safety Report 13558204 (Version 1)
Quarter: 2017Q2

REPORT INFORMATION
  Report Type: Other
  Country: GB (occurrence: CM)
  Receive Date: 20170517
  Receipt Date: 20170517
  Transmission Date: 20170830
  Serious: Yes (Life-Threatening, Disabling, Other)
  Sender: FDA-Public Use
  Company Number: CM-INTERNATIONAL MEDICATION SYSTEMS, LIMITED-2020911

PATIENT
  Age: 26 Year
  Sex: Female

DRUGS (1)
  1. 1% LIGNOCAINE WITH EPINEPHRINE [Suspect]
     Active Substance: EPINEPHRINE\LIDOCAINE
     Indication: LOCAL ANAESTHESIA

REACTIONS (2)
  - Dry gangrene [Recovered/Resolved with Sequelae]
  - Finger amputation [None]
